FAERS Safety Report 16661386 (Version 1)
Quarter: 2019Q3

REPORT INFORMATION
  Report Type: Spontaneous
  Country: US (occurrence: US)
  Receive Date: 20190802
  Receipt Date: 20190802
  Transmission Date: 20191004
  Serious: Yes (Hospitalization)
  Sender: FDA-Public Use
  Company Number: US-TEVA-2019-US-1085298

PATIENT
  Age: 31 Year
  Sex: Male
  Weight: 108 kg

DRUGS (7)
  1. TRAZODONE [Suspect]
     Active Substance: TRAZODONE HYDROCHLORIDE
     Dosage: 150 MG AT BED TIME
     Route: 065
  2. IBUPROFEN. [Concomitant]
     Active Substance: IBUPROFEN
     Dates: start: 20190506, end: 20190506
  3. VITAMIN D2 [Concomitant]
     Active Substance: ERGOCALCIFEROL
     Dates: start: 20181121
  4. WELLBUTRIN [Suspect]
     Active Substance: BUPROPION HYDROCHLORIDE
     Dosage: 300 MILLIGRAM DAILY; 300 MG ONCE EVERY MORNING
     Route: 048
     Dates: start: 20190522, end: 20190604
  5. TRAZODONE [Suspect]
     Active Substance: TRAZODONE HYDROCHLORIDE
     Indication: INSOMNIA
     Dosage: 100 MG AT BED TIME
     Route: 048
     Dates: start: 20190430
  6. INVEGA SUSTENNA [Suspect]
     Active Substance: PALIPERIDONE PALMITATE
     Indication: SCHIZOPHRENIA
     Dosage: 234 MG MONTHLY
     Route: 030
     Dates: start: 20180322
  7. WELLBUTRIN [Suspect]
     Active Substance: BUPROPION HYDROCHLORIDE
     Indication: DEPRESSION
     Dosage: 150 MILLIGRAM DAILY; 150 MG ONCE DAILY
     Route: 048
     Dates: start: 20190430

REACTIONS (1)
  - Suicidal ideation [Recovered/Resolved]

NARRATIVE: CASE EVENT DATE: 20190603
